FAERS Safety Report 8457173-3 (Version None)
Quarter: 2012Q2

REPORT INFORMATION
  Report Type: 
  Country: None (occurrence: None)
  Receive Date: 20120621
  Receipt Date: 20120531
  Transmission Date: 20120825
  Serious: No
  Sender: FDA-Public Use
  Company Number: US-BAYER-2012-055098

PATIENT
  Age: 84 Year
  Sex: Male
  Weight: 73 kg

DRUGS (2)
  1. ALEVE (CAPLET) [Suspect]
     Indication: ARTHRITIS
     Dosage: 2 DF, PRN
     Route: 048
     Dates: start: 20120401
  2. BAYER EXTRA STRENGTH PLUS [Suspect]
     Indication: ARTHRITIS
     Dosage: 2 DF, PRN
     Route: 048
     Dates: start: 19910101, end: 20111101

REACTIONS (2)
  - GLOSSODYNIA [None]
  - ARTHRITIS [None]
